FAERS Safety Report 7386701-4 (Version None)
Quarter: 2011Q1

REPORT INFORMATION
  Report Type: 
  Country: None (occurrence: None)
  Receive Date: 20110331
  Receipt Date: 20110329
  Transmission Date: 20110831
  Serious: Yes (Other)
  Sender: FDA-Public Use
  Company Number: US-PFIZER INC-2011070249

PATIENT
  Sex: Male
  Weight: 87.075 kg

DRUGS (3)
  1. LYRICA [Suspect]
     Dosage: 175 MG, 3X/DAY
     Route: 048
  2. BUPRENORPHINE HCL AND NALOXONE HCL [Concomitant]
     Dosage: UNK
  3. LYRICA [Suspect]
     Indication: BACK PAIN
     Dosage: 900 MG, 1X/DAY
     Route: 048

REACTIONS (6)
  - HYPOTHYROIDISM [None]
  - WEIGHT DECREASED [None]
  - HYPERTENSION [None]
  - SMALL INTESTINE ULCER [None]
  - EMOTIONAL DISORDER [None]
  - COLITIS [None]
